FAERS Safety Report 18355508 (Version 1)
Quarter: 2020Q4

REPORT INFORMATION
  Report Type: Spontaneous
  Country: JP (occurrence: JP)
  Receive Date: 20201007
  Receipt Date: 20201007
  Transmission Date: 20210114
  Serious: Yes (Hospitalization)
  Sender: FDA-Public Use
  Company Number: JP-JNJFOC-A-CH2017-160183

PATIENT
  Age: 8 Year
  Sex: Male
  Weight: 15.9 kg

DRUGS (13)
  1. UPTRAVI [Suspect]
     Active Substance: SELEXIPAG
     Dosage: 0.35 MG, BID
     Route: 048
     Dates: start: 20171011, end: 20171113
  2. OPSUMIT [Concomitant]
     Active Substance: MACITENTAN
     Dosage: 6.5 MG, QD
     Dates: start: 20190213
  3. OPSUMIT [Concomitant]
     Active Substance: MACITENTAN
     Indication: PULMONARY ARTERIAL HYPERTENSION
     Dosage: 6 MG, QD
     Dates: end: 20190212
  4. OXYGEN. [Concomitant]
     Active Substance: OXYGEN
  5. UPTRAVI [Suspect]
     Active Substance: SELEXIPAG
     Dosage: 0.1 MG, BID
     Route: 048
     Dates: start: 20170817, end: 20170823
  6. UPTRAVI [Suspect]
     Active Substance: SELEXIPAG
     Dosage: 0.2 MG, BID
     Route: 048
     Dates: start: 20170831, end: 20170912
  7. UPTRAVI [Suspect]
     Active Substance: SELEXIPAG
     Dosage: 0.4 MG, BID
     Route: 048
     Dates: start: 20171114
  8. UPTRAVI [Suspect]
     Active Substance: SELEXIPAG
     Dosage: 0.25 MG, BID
     Route: 048
     Dates: start: 20170913, end: 20170926
  9. ADCIRCA [Concomitant]
     Active Substance: TADALAFIL
     Indication: PULMONARY ARTERIAL HYPERTENSION
     Dosage: 20 MG, QD
  10. MIYA-BM [Concomitant]
     Active Substance: CLOSTRIDIUM BUTYRICUM SPORES STRAIN M-55
     Indication: CONSTIPATION
     Dosage: 1.5 G, QD
  11. UPTRAVI [Suspect]
     Active Substance: SELEXIPAG
     Dosage: 0.15 MG, BID
     Route: 048
     Dates: start: 20170824, end: 20170830
  12. UPTRAVI [Suspect]
     Active Substance: SELEXIPAG
     Indication: PULMONARY ARTERIAL HYPERTENSION
     Dosage: 0.05 MG, BID
     Route: 048
     Dates: start: 20170810, end: 20170816
  13. UPTRAVI [Suspect]
     Active Substance: SELEXIPAG
     Dosage: 0.3 MG, BID
     Route: 048
     Dates: start: 20170927, end: 20171010

REACTIONS (7)
  - Bronchitis viral [Recovered/Resolved]
  - Supraventricular tachycardia [Recovering/Resolving]
  - Diarrhoea [Recovered/Resolved]
  - Rhinitis allergic [Not Recovered/Not Resolved]
  - Bronchitis mycoplasmal [Recovered/Resolved]
  - Off label use [Unknown]
  - Asthma [Recovering/Resolving]

NARRATIVE: CASE EVENT DATE: 20170830
